FAERS Safety Report 14701704 (Version 1)
Quarter: 2018Q1

REPORT INFORMATION
  Report Type: Spontaneous
  Country: DE (occurrence: DE)
  Receive Date: 20180331
  Receipt Date: 20180331
  Transmission Date: 20180509
  Serious: Yes (Other)
  Sender: FDA-Public Use
  Company Number: DE-AUROBINDO-AUR-APL-2018-016717

PATIENT
  Age: 33 Year
  Sex: Female
  Weight: 90 kg

DRUGS (3)
  1. VENLAFAXINE [Suspect]
     Active Substance: VENLAFAXINE HYDROCHLORIDE
     Indication: DEPRESSION
     Dosage: 150 MILLIGRAM, ONCE A DAY, 150 [MG/D ]
     Route: 048
     Dates: start: 20161231, end: 20170521
  2. DOMINAL (PROTHIPENDYL HYDROCHLORIDE) [Concomitant]
     Active Substance: PROTHIPENDYL HYDROCHLORIDE
     Indication: DEPRESSION
     Dosage: 40 MILLIGRAM, ONCE A DAY, 40 [MG/D ]/ UNKNOWN, IF DRUG THERAPY WAS CONTINUED
     Route: 048
     Dates: start: 20161231, end: 20170201
  3. TRAZODONE [Concomitant]
     Active Substance: TRAZODONE HYDROCHLORIDE
     Indication: DEPRESSION
     Dosage: 200 [MG/D ]/ UNKNOWN, IF DRUG THERAPY WAS CONTINUED
     Route: 048
     Dates: start: 20161231, end: 20170201

REACTIONS (1)
  - Abortion spontaneous [Recovered/Resolved]
